FAERS Safety Report 9664905 (Version 1)
Quarter: 2013Q4

REPORT INFORMATION
  Report Type: Spontaneous
  Country: BR (occurrence: None)
  Receive Date: 20131031
  Receipt Date: 20131031
  Transmission Date: 20140711
  Serious: Yes (Other)
  Sender: FDA-Public Use
  Company Number: 7245029

PATIENT
  Sex: Female

DRUGS (1)
  1. EUTHYROX [Suspect]
     Indication: HYPOTHYROIDISM

REACTIONS (4)
  - Hyperthyroidism [None]
  - Drug ineffective [None]
  - Product quality issue [None]
  - Counterfeit drug administered [None]
